FAERS Safety Report 15010674 (Version 1)
Quarter: 2018Q2

REPORT INFORMATION
  Report Type: Report from Study
  Country: US (occurrence: US)
  Receive Date: 20180614
  Receipt Date: 20180614
  Transmission Date: 20180711
  Serious: Yes (Other)
  Sender: FDA-Public Use
  Company Number: US-BAYER-2018-109169

PATIENT
  Age: 56 Year
  Sex: Female

DRUGS (5)
  1. STIVARGA [Suspect]
     Active Substance: REGORAFENIB
     Indication: COLON CANCER
     Dosage: 40 MG DAILY, FOR 21 DAYS
     Route: 048
     Dates: start: 20130309, end: 20180509
  2. VALIUM [Concomitant]
     Active Substance: DIAZEPAM
  3. ARMOUR THYROID [Concomitant]
     Active Substance: THYROID, PORCINE
  4. MORPHINE [Concomitant]
     Active Substance: MORPHINE
  5. METHADONE [Concomitant]
     Active Substance: METHADONE HYDROCHLORIDE

REACTIONS (2)
  - Off label use [None]
  - Surgery [Not Recovered/Not Resolved]

NARRATIVE: CASE EVENT DATE: 20180509
